FAERS Safety Report 7887387-2 (Version None)
Quarter: 2011Q4

REPORT INFORMATION
  Report Type: 
  Country: None (occurrence: None)
  Receive Date: 20111102
  Receipt Date: 20110718
  Transmission Date: 20120403
  Serious: No
  Sender: FDA-Public Use
  Company Number: US-AMGEN-USASP2011002256

PATIENT
  Age: 52 Year
  Sex: Female

DRUGS (1)
  1. ENBREL [Suspect]
     Indication: RHEUMATOID ARTHRITIS
     Dosage: 50 MG, QWK
     Dates: start: 20110101

REACTIONS (13)
  - ARTHRALGIA [None]
  - INJECTION SITE SWELLING [None]
  - PAIN [None]
  - INJECTION SITE PAIN [None]
  - MUSCULOSKELETAL PAIN [None]
  - INJECTION SITE HAEMORRHAGE [None]
  - BACK PAIN [None]
  - EYE INFECTION [None]
  - INJECTION SITE ERYTHEMA [None]
  - PHARYNGITIS [None]
  - NECK PAIN [None]
  - EYE INFLAMMATION [None]
  - GROIN PAIN [None]
